FAERS Safety Report 7762801-1 (Version None)
Quarter: 2011Q3

REPORT INFORMATION
  Report Type: 
  Country: None (occurrence: None)
  Receive Date: 20110920
  Receipt Date: 20110909
  Transmission Date: 20111222
  Serious: Yes (Death, Other)
  Sender: FDA-Public Use
  Company Number: TW-BRISTOL-MYERS SQUIBB COMPANY-16066581

PATIENT
  Age: 74 Year
  Sex: Female

DRUGS (4)
  1. DIPHENHYDRAMINE HCL [Concomitant]
  2. MITOMYCIN [Suspect]
     Dosage: INJECTION
     Dates: start: 20110215, end: 20110217
  3. METHOTREXATE [Suspect]
     Route: 065
     Dates: start: 20110215, end: 20110217
  4. EPOSIN [Suspect]
     Route: 065
     Dates: start: 20110215, end: 20110217

REACTIONS (5)
  - SEPTIC SHOCK [None]
  - CONSTIPATION [None]
  - NAUSEA [None]
  - VOMITING [None]
  - DECREASED APPETITE [None]
